FAERS Safety Report 25006127 (Version 1)
Quarter: 2025Q1

REPORT INFORMATION
  Report Type: Spontaneous
  Country: GB (occurrence: GB)
  Receive Date: 20250224
  Receipt Date: 20250224
  Transmission Date: 20250409
  Serious: Yes (Hospitalization, Other)
  Sender: PFIZER
  Company Number: None

PATIENT
  Age: 37 Year
  Sex: Female
  Weight: 90 kg

DRUGS (1)
  1. LITFULO [Suspect]
     Active Substance: RITLECITINIB TOSYLATE
     Dosage: 50 MG, DAILY
     Dates: start: 20240805

REACTIONS (2)
  - Gastritis [Recovering/Resolving]
  - Costochondritis [Not Recovered/Not Resolved]

NARRATIVE: CASE EVENT DATE: 20250108
